FAERS Safety Report 4786177-7 (Version None)
Quarter: 2005Q4

REPORT INFORMATION
  Report Type: 
  Country: None (occurrence: None)
  Receive Date: 20051003
  Receipt Date: 20050913
  Transmission Date: 20060501
  Serious: Yes (Hospitalization, Other)
  Sender: FDA-Public Use
  Company Number: PHNU2005PL03178

PATIENT
  Age: 70 Year
  Sex: Female
  Weight: 73 kg

DRUGS (13)
  1. GLEEVEC [Suspect]
     Indication: CHRONIC MYELOID LEUKAEMIA
     Dosage: 400 MG/DAY
     Route: 048
     Dates: start: 20020620, end: 20020620
  2. GLEEVEC [Suspect]
     Dosage: 300 MG/DAY
     Route: 048
     Dates: start: 20020621, end: 20020929
  3. GLEEVEC [Suspect]
     Dosage: 300 TO 200 MG/DAY
     Route: 048
     Dates: start: 20020930, end: 20041001
  4. GLEEVEC [Suspect]
     Dosage: 300 TO 400 MG/DAY
     Route: 048
     Dates: start: 20041001, end: 20041001
  5. GLEEVEC [Suspect]
     Dosage: 400 MG/DAY
     Route: 048
     Dates: start: 20041001, end: 20041206
  6. GLEEVEC [Suspect]
     Dosage: 200 MG/DAY
     Route: 048
     Dates: start: 20041207, end: 20050420
  7. GLEEVEC [Suspect]
     Dosage: UNKNOWN
     Route: 048
     Dates: start: 20050421, end: 20050501
  8. GLEEVEC [Suspect]
     Dosage: 400 MG/DAY
     Route: 048
     Dates: start: 20050501
  9. TIALORID [Concomitant]
     Route: 065
  10. POTASSIUM [Concomitant]
     Dosage: UNKNOWN
     Route: 065
  11. INTERFERON [Concomitant]
     Indication: CONDYLOMA ACUMINATUM
     Dosage: UNKNOWN
     Route: 065
  12. PEGASYS [Concomitant]
     Dosage: UNKNOWN
     Route: 065
     Dates: start: 20041207, end: 20050420
  13. FURAGIN [Concomitant]
     Indication: URINARY TRACT INFECTION
     Dosage: UNKNOWN
     Route: 065
     Dates: start: 20050701

REACTIONS (7)
  - BIOPSY URETHRA ABNORMAL [None]
  - CONDYLOMA ACUMINATUM [None]
  - HAEMATURIA [None]
  - LEUKOPENIA [None]
  - OEDEMA [None]
  - VIRAL INFECTION [None]
  - VULVAL CANCER [None]
